FAERS Safety Report 7219120-1 (Version None)
Quarter: 2011Q1

REPORT INFORMATION
  Report Type: 
  Country: None (occurrence: None)
  Receive Date: 20110111
  Receipt Date: 20101111
  Transmission Date: 20110831
  Serious: Yes (Hospitalization)
  Sender: FDA-Public Use
  Company Number: IT-CELGENEUS-083-20785-09111863

PATIENT
  Sex: Female

DRUGS (1)
  1. THALIDOMIDE [Suspect]
     Indication: MULTIPLE MYELOMA
     Route: 048
     Dates: start: 20090911, end: 20091029

REACTIONS (5)
  - NAUSEA [None]
  - VOMITING [None]
  - GENERAL PHYSICAL HEALTH DETERIORATION [None]
  - FEEDING DISORDER [None]
  - PYREXIA [None]
